FAERS Safety Report 8161441-2 (Version None)
Quarter: 2012Q1

REPORT INFORMATION
  Report Type: 
  Country: None (occurrence: None)
  Receive Date: 20120224
  Receipt Date: 20120221
  Transmission Date: 20120608
  Serious: Yes (Hospitalization, Disabling, Other)
  Sender: FDA-Public Use
  Company Number: US-AMGEN-USASP2012010617

PATIENT
  Age: 41 Year
  Sex: Female

DRUGS (1)
  1. ENBREL [Suspect]
     Indication: PSORIASIS
     Dosage: UNK
     Dates: start: 20100101

REACTIONS (9)
  - VASCULAR FRAGILITY [None]
  - CYSTOPEXY [None]
  - DEPRESSION [None]
  - GLIOBLASTOMA [None]
  - CSF SHUNT OPERATION [None]
  - AMNESIA [None]
  - DISABILITY [None]
  - HYSTERECTOMY [None]
  - PAIN [None]
